FAERS Safety Report 19889817 (Version 1)
Quarter: 2021Q3

REPORT INFORMATION
  Report Type: Spontaneous
  Country: US (occurrence: US)
  Receive Date: 20210927
  Receipt Date: 20210927
  Transmission Date: 20211014
  Serious: No
  Sender: FDA-Public Use
  Company Number: US-ORGANON-O2109USA000311

PATIENT
  Age: 42 Year
  Sex: Female
  Weight: 51.7 kg

DRUGS (1)
  1. NEXPLANON [Suspect]
     Active Substance: ETONOGESTREL
     Indication: CONTRACEPTION
     Dosage: 1 ROD OF 68 MG, ONCE, LEFT UPPER ARM MEDIAL SURFACE
     Route: 058
     Dates: start: 20210507

REACTIONS (4)
  - Device issue [Not Recovered/Not Resolved]
  - Weight increased [Unknown]
  - Intermenstrual bleeding [Not Recovered/Not Resolved]
  - Complication associated with device [Not Recovered/Not Resolved]

NARRATIVE: CASE EVENT DATE: 2021
